FAERS Safety Report 16478264 (Version 2)
Quarter: 2019Q3

REPORT INFORMATION
  Report Type: Spontaneous
  Country: US (occurrence: US)
  Receive Date: 20190626
  Receipt Date: 20190730
  Transmission Date: 20191004
  Serious: Yes (Hospitalization, Other)
  Sender: FDA-Public Use
  Company Number: US-GLENMARK PHARMACEUTICALS-2019GMK041841

PATIENT

DRUGS (1)
  1. TERBINAFINE HCL [Suspect]
     Active Substance: TERBINAFINE HYDROCHLORIDE
     Indication: ONYCHOMYCOSIS
     Dosage: 250 MG, OD
     Route: 048

REACTIONS (2)
  - Aspartate aminotransferase increased [Recovering/Resolving]
  - Rhabdomyolysis [Recovering/Resolving]
